FAERS Safety Report 10573616 (Version 1)
Quarter: 2014Q4

REPORT INFORMATION
  Report Type: Spontaneous
  Country: CN (occurrence: None)
  Receive Date: 20141030
  Receipt Date: 20141030
  Transmission Date: 20150529
  Serious: Yes (Other)
  Sender: FDA-Public Use
  Company Number: PHHY2014CN054051

PATIENT
  Age: 42 Year
  Sex: Male

DRUGS (1)
  1. SEBIVO [Suspect]
     Active Substance: TELBIVUDINE
     Indication: CHRONIC HEPATITIS B
     Route: 048

REACTIONS (6)
  - Hepatic function abnormal [None]
  - Alanine aminotransferase increased [None]
  - Fatigue [None]
  - Drug resistance [None]
  - Nausea [None]
  - Aspartate aminotransferase increased [None]
